FAERS Safety Report 5115601-5 (Version None)
Quarter: 2006Q3

REPORT INFORMATION
  Report Type: 
  Country: None (occurrence: None)
  Receive Date: 20060927
  Receipt Date: 20060117
  Transmission Date: 20061208
  Serious: Yes (Hospitalization)
  Sender: FDA-Public Use
  Company Number: US-AVENTIS-200610701US

PATIENT
  Sex: Male
  Weight: 91 kg

DRUGS (12)
  1. LANTUS [Suspect]
     Indication: DIABETES MELLITUS NON-INSULIN-DEPENDENT
     Dates: start: 20060113
  2. OPTICLIK (INSULIN INJECTION PEN) [Suspect]
     Indication: DIABETES MELLITUS NON-INSULIN-DEPENDENT
     Dates: start: 20060113
  3. AMITRIPTYLINE HCL [Suspect]
     Indication: FREQUENT BOWEL MOVEMENTS
  4. TRICOR [Concomitant]
  5. AVANDIA [Concomitant]
  6. SERUMLIPIDREDUCING AGENTS [Concomitant]
     Dosage: DOSE: UNKNOWN
  7. METFORMIN [Concomitant]
  8. ARTHROTEC [Concomitant]
     Dosage: DOSE: UNKNOWN
  9. ZOCOR [Concomitant]
  10. SSRI [Concomitant]
  11. BENICAR                                 /USA/ [Concomitant]
  12. DETROL [Concomitant]

REACTIONS (7)
  - BLOOD GLUCOSE FLUCTUATION [None]
  - DEVICE FAILURE [None]
  - INCORRECT DOSE ADMINISTERED [None]
  - LOSS OF CONSCIOUSNESS [None]
  - NO ADVERSE EFFECT [None]
  - PHARMACEUTICAL PRODUCT COMPLAINT [None]
  - SYNCOPE [None]
